FAERS Safety Report 6678184-4 (Version None)
Quarter: 2010Q2

REPORT INFORMATION
  Report Type: 
  Country: None (occurrence: None)
  Receive Date: 20100408
  Receipt Date: 20100408
  Transmission Date: 20101027
  Serious: Yes (Hospitalization)
  Sender: FDA-Public Use
  Company Number: None

PATIENT
  Sex: Female
  Weight: 116 kg

DRUGS (4)
  1. CISPLATIN [Suspect]
     Dosage: 92 MG
  2. DOXORUBICIN HCL [Suspect]
     Dosage: 82 MG
  3. TAXOL [Suspect]
     Dosage: 293 MG
  4. NEULASTA [Suspect]
     Dosage: 6 MG

REACTIONS (11)
  - AGGRESSION [None]
  - BLOOD CREATINE INCREASED [None]
  - CONFUSIONAL STATE [None]
  - DEHYDRATION [None]
  - FALL [None]
  - FATIGUE [None]
  - HEAD INJURY [None]
  - MYALGIA [None]
  - REFUSAL OF TREATMENT BY PATIENT [None]
  - RENAL FAILURE ACUTE [None]
  - URINARY TRACT INFECTION [None]
